FAERS Safety Report 6264495-3 (Version None)
Quarter: 2009Q3

REPORT INFORMATION
  Report Type: 
  Country: None (occurrence: None)
  Receive Date: 20090708
  Receipt Date: 20090703
  Transmission Date: 20100115
  Serious: Yes (Life-Threatening)
  Sender: FDA-Public Use
  Company Number: 2009SP014657

PATIENT
  Age: 45 Year
  Sex: Female

DRUGS (1)
  1. NOXAFIL [Suspect]
     Indication: DRUG USE FOR UNKNOWN INDICATION

REACTIONS (2)
  - CARDIAC ARREST [None]
  - PRESYNCOPE [None]
